FAERS Safety Report 9958736 (Version 1)
Quarter: 2014Q1

REPORT INFORMATION
  Report Type: Spontaneous
  Country: US (occurrence: None)
  Receive Date: 20140228
  Receipt Date: 20140228
  Transmission Date: 20141002
  Serious: Yes (Life-Threatening, Hospitalization)
  Sender: FDA-Public Use
  Company Number: None

PATIENT
  Age: 48 Year
  Sex: Female
  Weight: 85.9 kg

DRUGS (1)
  1. GAMMAGARD [Suspect]
     Indication: MYASTHENIA GRAVIS
     Route: 042
     Dates: start: 2012

REACTIONS (1)
  - Myocardial infarction [None]
